FAERS Safety Report 7644427-3 (Version None)
Quarter: 2011Q3

REPORT INFORMATION
  Report Type: 
  Country: None (occurrence: None)
  Receive Date: 20110729
  Receipt Date: 20110720
  Transmission Date: 20111222
  Serious: Yes (Hospitalization, Other)
  Sender: FDA-Public Use
  Company Number: CA-PURDUE-CAN-2011-0001913

PATIENT
  Age: 33 Year
  Sex: Female

DRUGS (2)
  1. HYDROMORPHONE HCL [Suspect]
     Indication: PAIN
     Dosage: UNK
     Route: 042
     Dates: start: 20110401
  2. HYDROMORPHONE HCL [Suspect]
     Dosage: UNK
     Route: 048
     Dates: start: 20110401

REACTIONS (4)
  - METABOLIC DISORDER [None]
  - DELIRIUM [None]
  - MUSCLE SPASMS [None]
  - HYPERAESTHESIA [None]
